FAERS Safety Report 17581113 (Version 4)
Quarter: 2020Q2

REPORT INFORMATION
  Report Type: Spontaneous
  Country: US (occurrence: US)
  Receive Date: 20200325
  Receipt Date: 20200428
  Transmission Date: 20200713
  Serious: Yes (Other)
  Sender: FDA-Public Use
  Company Number: US-TEVA-2020-US-1210275

PATIENT
  Age: 55 Year
  Sex: Female

DRUGS (14)
  1. GLIPIZIDE ER [Concomitant]
     Active Substance: GLIPIZIDE
  2. SILDENAFIL. [Concomitant]
     Active Substance: SILDENAFIL
  3. ASPIRIN 81 [Concomitant]
     Active Substance: ASPIRIN
  4. LETAIRIS [Concomitant]
     Active Substance: AMBRISENTAN
  5. SYNTHROID [Concomitant]
     Active Substance: LEVOTHYROXINE SODIUM
  6. POTASSIUM CHLORIDE. [Concomitant]
     Active Substance: POTASSIUM CHLORIDE
  7. ACYCLOVIR. [Suspect]
     Active Substance: ACYCLOVIR
     Route: 065
  8. BUMEX [Concomitant]
     Active Substance: BUMETANIDE
  9. SYNRIBO [Suspect]
     Active Substance: OMACETAXINE MEPESUCCINATE
     Indication: CHRONIC MYELOID LEUKAEMIA
     Dosage: 2.63MG/0.75ML,BID FOR 14 DAYS OF 28 DAY CYCLE
     Route: 065
     Dates: start: 20200314
  10. PRAVASTATIN SODIUM. [Concomitant]
     Active Substance: PRAVASTATIN SODIUM
  11. TRESIBA [Concomitant]
     Active Substance: INSULIN DEGLUDEC
  12. UPTRAVI [Concomitant]
     Active Substance: SELEXIPAG
  13. LEVAQUIN [Suspect]
     Active Substance: LEVOFLOXACIN
     Route: 065
  14. ALLOPURINOL. [Concomitant]
     Active Substance: ALLOPURINOL

REACTIONS (7)
  - Diarrhoea [Unknown]
  - Pain [Unknown]
  - Dyspepsia [Unknown]
  - Nausea [Unknown]
  - Transfusion [Unknown]
  - Myalgia [Unknown]
  - Neutrophil count decreased [Unknown]

NARRATIVE: CASE EVENT DATE: 20200320
